FAERS Safety Report 6747581-0 (Version None)
Quarter: 2010Q2

REPORT INFORMATION
  Report Type: 
  Country: None (occurrence: None)
  Receive Date: 20100528
  Receipt Date: 20100525
  Transmission Date: 20101027
  Serious: Yes (Hospitalization)
  Sender: FDA-Public Use
  Company Number: FR-BRISTOL-MYERS SQUIBB COMPANY-15120926

PATIENT
  Age: 71 Year
  Sex: Male

DRUGS (11)
  1. APROVEL TABS 150 MG [Suspect]
     Route: 048
     Dates: end: 20091018
  2. ARIXTRA [Suspect]
     Dates: start: 20090814, end: 20091018
  3. KARDEGIC [Suspect]
     Dosage: INTERRUPTED ON 18-OCT-2009 AND RESTARTED AT A DOSE OF 75MG DAILY.
     Route: 048
  4. LYRICA [Suspect]
     Route: 048
     Dates: end: 20091018
  5. MIANSERIN [Suspect]
     Route: 048
     Dates: end: 20091018
  6. OGASTORO [Suspect]
     Route: 048
     Dates: end: 20091018
  7. TAHOR [Suspect]
     Route: 048
     Dates: end: 20091018
  8. CONTRAMAL [Suspect]
     Dosage: 1 DF = 1 TABLET 100MG SR.
     Route: 048
     Dates: end: 20091018
  9. ATARAX [Suspect]
     Route: 048
     Dates: end: 20091018
  10. LANSOYL [Concomitant]
  11. DOLIPRANE [Concomitant]

REACTIONS (4)
  - ANAEMIA [None]
  - INTRA-ABDOMINAL HAEMATOMA [None]
  - PYREXIA [None]
  - RENAL FAILURE ACUTE [None]
